FAERS Safety Report 5885425-X (Version None)
Quarter: 2008Q3

REPORT INFORMATION
  Report Type: 
  Country: None (occurrence: None)
  Receive Date: 20080916
  Receipt Date: 20080902
  Transmission Date: 20090109
  Serious: Yes (Death)
  Sender: FDA-Public Use
  Company Number: US-ELI_LILLY_AND_COMPANY-US200809000248

PATIENT
  Sex: Male

DRUGS (5)
  1. CYMBALTA [Suspect]
     Dosage: 30 MG, UNK
     Dates: start: 20060401
  2. CYMBALTA [Suspect]
     Dosage: 60 MG, UNK
  3. DARVOCET [Concomitant]
  4. OXYGEN [Concomitant]
  5. MULTI-VITAMIN [Concomitant]
     Indication: VITAMIN D DEFICIENCY

REACTIONS (2)
  - CYSTIC FIBROSIS [None]
  - HAEMORRHAGE [None]
